APPROVED DRUG PRODUCT: ALAWAY
Active Ingredient: KETOTIFEN FUMARATE
Strength: EQ 0.025% BASE
Dosage Form/Route: SOLUTION/DROPS;OPHTHALMIC
Application: N021996 | Product #001
Applicant: BAUSCH AND LOMB INC
Approved: Dec 1, 2006 | RLD: Yes | RS: Yes | Type: OTC